FAERS Safety Report 6616684-3 (Version None)
Quarter: 2010Q1

REPORT INFORMATION
  Report Type: 
  Country: None (occurrence: None)
  Receive Date: 20100305
  Receipt Date: 20100301
  Transmission Date: 20100710
  Serious: Yes (Death)
  Sender: FDA-Public Use
  Company Number: DE-ELI_LILLY_AND_COMPANY-DE201002005242

PATIENT
  Age: 91 Year
  Sex: Female
  Weight: 57 kg

DRUGS (3)
  1. DULOXETINE HYDROCHLORIDE [Suspect]
     Dosage: UNK, UNK
     Route: 048
     Dates: start: 20090313
  2. TRAMAL                                  /GFR/ [Concomitant]
  3. MELPERON [Concomitant]

REACTIONS (1)
  - DEATH [None]
